FAERS Safety Report 22175720 (Version 1)
Quarter: 2023Q2

REPORT INFORMATION
  Report Type: Report from Study
  Country: CA (occurrence: CA)
  Receive Date: 20230405
  Receipt Date: 20230405
  Transmission Date: 20230721
  Serious: Yes (Hospitalization)
  Sender: FDA-Public Use
  Company Number: CA-GLAXOSMITHKLINE-CA2023AMR048443

PATIENT

DRUGS (9)
  1. MEPOLIZUMAB [Suspect]
     Active Substance: MEPOLIZUMAB
     Indication: Asthma
     Dosage: 100 MG, Z (EVERY 4 WEEKS)
     Route: 058
     Dates: start: 20190605
  2. CARVEDILOL [Suspect]
     Active Substance: CARVEDILOL
     Indication: Product used for unknown indication
     Dosage: UNK
  3. CEFUROXIME [Concomitant]
     Active Substance: CEFUROXIME
     Indication: Product used for unknown indication
     Dosage: 500 MG, BID
  4. PREDNISONE [Concomitant]
     Active Substance: PREDNISONE
     Indication: Product used for unknown indication
     Dosage: 50 MG, QD
  5. PREDNISONE [Concomitant]
     Active Substance: PREDNISONE
     Dosage: UNK (25MG X 2 DAYS)
  6. PREDNISONE [Concomitant]
     Active Substance: PREDNISONE
     Dosage: UNK (15MG X 2 DAYS)
  7. PREDNISONE [Concomitant]
     Active Substance: PREDNISONE
     Dosage: UNK (10MG X 2DAYS)
  8. PREDNISONE [Concomitant]
     Active Substance: PREDNISONE
     Dosage: UNK (5MG X 1 DAY )
  9. DOXYCYCLINE [Concomitant]
     Active Substance: DOXYCYCLINE
     Indication: Product used for unknown indication
     Dosage: 100 MG, BID (14DAYS)

REACTIONS (2)
  - Dizziness [Unknown]
  - Fall [Unknown]
